FAERS Safety Report 21344330 (Version 5)
Quarter: 2025Q1

REPORT INFORMATION
  Report Type: Report from Study
  Country: JP (occurrence: JP)
  Receive Date: 20220916
  Receipt Date: 20250131
  Transmission Date: 20250408
  Serious: Yes (Hospitalization)
  Sender: BIOGEN
  Company Number: JP-BIOGEN-2022BI01152057

PATIENT
  Age: 54 Year
  Sex: Male

DRUGS (10)
  1. TECFIDERA [Suspect]
     Active Substance: DIMETHYL FUMARATE
     Indication: Multiple sclerosis
     Route: 050
     Dates: start: 20170614
  2. TECFIDERA [Suspect]
     Active Substance: DIMETHYL FUMARATE
     Route: 050
     Dates: start: 20171129
  3. TECFIDERA [Suspect]
     Active Substance: DIMETHYL FUMARATE
     Route: 050
  4. ENTECAVIR HYDRATE [Concomitant]
     Route: 050
  5. FAMOTIDINE [Concomitant]
     Active Substance: FAMOTIDINE
     Route: 050
  6. METHYLCOBALAMIN [Concomitant]
     Active Substance: METHYLCOBALAMIN
     Route: 050
  7. TEPRENONE [Concomitant]
     Active Substance: TEPRENONE
     Route: 050
  8. LOXOPROFEN [Concomitant]
     Active Substance: LOXOPROFEN
     Route: 050
  9. GASTER [Concomitant]
     Active Substance: FAMOTIDINE
     Indication: Prophylaxis
     Route: 050
  10. DECADRON [Concomitant]
     Active Substance: DEXAMETHASONE
     Indication: Multiple sclerosis
     Route: 050

REACTIONS (3)
  - Multiple sclerosis relapse [Recovered/Resolved]
  - Therapeutic response decreased [Unknown]
  - Multiple sclerosis [Unknown]

NARRATIVE: CASE EVENT DATE: 20220406
